FAERS Safety Report 9146198 (Version 1)
Quarter: 2013Q1

REPORT INFORMATION
  Report Type: Spontaneous
  Country: MX (occurrence: MX)
  Receive Date: 20130307
  Receipt Date: 20130307
  Transmission Date: 20140127
  Serious: Yes (Death)
  Sender: FDA-Public Use
  Company Number: PHHY2013MX022194

PATIENT
  Age: 70 Year
  Sex: Female

DRUGS (1)
  1. ONBREZ [Suspect]
     Indication: RESPIRATORY DISORDER
     Dosage: 150 UG, QD
     Dates: start: 20120901

REACTIONS (1)
  - Infarction [Fatal]
